FAERS Safety Report 6272965-7 (Version None)
Quarter: 2009Q3

REPORT INFORMATION
  Report Type: 
  Country: None (occurrence: None)
  Receive Date: 20090720
  Receipt Date: 20090710
  Transmission Date: 20100115
  Serious: Yes (Hospitalization)
  Sender: FDA-Public Use
  Company Number: US-BIOGENIDEC-2009BI021464

PATIENT
  Age: 35 Year
  Sex: Female

DRUGS (1)
  1. TYSABRI [Suspect]
     Indication: MULTIPLE SCLEROSIS
     Route: 042
     Dates: start: 20070806

REACTIONS (6)
  - HEADACHE [None]
  - HYPOAESTHESIA [None]
  - INFUSION SITE HAEMATOMA [None]
  - PARAESTHESIA [None]
  - POOR VENOUS ACCESS [None]
  - VERTIGO [None]
